FAERS Safety Report 4426083-0 (Version None)
Quarter: 2004Q3

REPORT INFORMATION
  Report Type: 
  Country: None (occurrence: None)
  Receive Date: 20040811
  Receipt Date: 20040726
  Transmission Date: 20050211
  Serious: Yes (Hospitalization)
  Sender: FDA-Public Use
  Company Number: DE-2004-029584

PATIENT
  Age: 38 Year
  Sex: Female

DRUGS (1)
  1. BETASERON [Suspect]
     Indication: PROGRESSIVE MULTIPLE SCLEROSIS
     Dosage: 8 MIU, EVERY 2D, SUBCUTANEOUS
     Route: 058

REACTIONS (10)
  - ANXIETY [None]
  - ATAXIA [None]
  - BASEDOW'S DISEASE [None]
  - DISEASE PROGRESSION [None]
  - DYSARTHRIA [None]
  - DYSPHONIA [None]
  - ENDOCRINE OPHTHALMOPATHY [None]
  - GOITRE [None]
  - HYPERTHYROIDISM [None]
  - NYSTAGMUS [None]
